FAERS Safety Report 8551089-X (Version None)
Quarter: 2012Q3

REPORT INFORMATION
  Report Type: 
  Country: None (occurrence: None)
  Receive Date: 20120730
  Receipt Date: 20110614
  Transmission Date: 20120928
  Serious: No
  Sender: FDA-Public Use
  Company Number: US-ALLERGAN-1112138US

PATIENT
  Sex: Female

DRUGS (2)
  1. LUMIGAN [Suspect]
     Indication: GLAUCOMA
     Dosage: UNK
     Dates: start: 20110501
  2. LUMIGAN [Suspect]
     Dosage: UNK
     Route: 047
     Dates: start: 20050101, end: 20110301

REACTIONS (1)
  - SCLERAL HYPERAEMIA [None]
